FAERS Safety Report 23477297 (Version 4)
Quarter: 2024Q4

REPORT INFORMATION
  Report Type: Spontaneous
  Country: GB (occurrence: GB)
  Receive Date: 20240204
  Receipt Date: 20241206
  Transmission Date: 20250115
  Serious: Yes (Other)
  Sender: EXELIXIS
  Company Number: GB-IPSEN Group, Research and Development-2023-19208

PATIENT
  Age: 19 Year
  Sex: Male
  Weight: 70.7 kg

DRUGS (3)
  1. CABOMETYX [Suspect]
     Active Substance: CABOZANTINIB S-MALATE
     Indication: Osteosarcoma metastatic
     Dosage: 60 MG, OD
     Route: 048
     Dates: start: 20230825, end: 20240822
  2. CABOMETYX [Suspect]
     Active Substance: CABOZANTINIB S-MALATE
     Indication: Off label use
     Dosage: UNK
     Route: 065
     Dates: start: 20241004
  3. LEVOTHYROXINE [Concomitant]
     Active Substance: LEVOTHYROXINE
     Indication: Hypothyroidism
     Dosage: ONGOING
     Route: 048
     Dates: start: 20231026

REACTIONS (3)
  - Pneumothorax [Recovered/Resolved]
  - Malignant neoplasm progression [Unknown]
  - Off label use [Unknown]

NARRATIVE: CASE EVENT DATE: 20230825
